FAERS Safety Report 6268453-4 (Version None)
Quarter: 2009Q3

REPORT INFORMATION
  Report Type: 
  Country: None (occurrence: None)
  Receive Date: 20090715
  Receipt Date: 20090702
  Transmission Date: 20100115
  Serious: Yes (Hospitalization)
  Sender: FDA-Public Use
  Company Number: DE-PFIZER INC-2009235705

PATIENT
  Age: 73 Year

DRUGS (6)
  1. PEGVISOMANT [Suspect]
     Indication: ACROMEGALY
     Dosage: 5 UNK, UNK
     Dates: start: 20051117
  2. TESTOSTERONE CIPIONATE [Suspect]
  3. ATACAND [Concomitant]
  4. GELOMYRTOL [Concomitant]
  5. VITAMIN D [Concomitant]
  6. CALCIUM [Concomitant]

REACTIONS (1)
  - PROSTATE CANCER [None]
